FAERS Safety Report 25105679 (Version 3)
Quarter: 2025Q4

REPORT INFORMATION
  Report Type: Spontaneous
  Country: GB (occurrence: GB)
  Receive Date: 20250321
  Receipt Date: 20251205
  Transmission Date: 20260117
  Serious: No
  Sender: EMD SERONO INC
  Company Number: GB-LICONSA-2020-006665

PATIENT
  Age: 66 Year
  Sex: Female

DRUGS (12)
  1. METFORMIN [Suspect]
     Active Substance: METFORMIN HYDROCHLORIDE
     Indication: Product used for unknown indication
  2. LEVOTHYROXINE SODIUM [Suspect]
     Active Substance: LEVOTHYROXINE SODIUM
     Indication: Product used for unknown indication
     Dosage: LEVOTHYROXINE SODIUM 25 UG UNKNOWN
  3. LEVOTHYROXINE SODIUM [Suspect]
     Active Substance: LEVOTHYROXINE SODIUM
     Dosage: 50 MICROGRAM
  4. BISOPROLOL [Suspect]
     Active Substance: BISOPROLOL
     Indication: Product used for unknown indication
  5. LEVOTHYROXINE [Suspect]
     Active Substance: LEVOTHYROXINE
     Indication: Product used for unknown indication
     Dosage: LEVOTHYROXINE 50 MCG
  6. LEVOTHYROXINE [Suspect]
     Active Substance: LEVOTHYROXINE
  7. OMEPRAZOLE [Suspect]
     Active Substance: OMEPRAZOLE
     Indication: Duodenal ulcer
     Dosage: OMEPRAZOLE 20 MG UNKNOWN
  8. OMEPRAZOLE [Suspect]
     Active Substance: OMEPRAZOLE
     Indication: Product used for unknown indication
  9. ASPIRIN [Suspect]
     Active Substance: ASPIRIN
     Indication: Product used for unknown indication
     Dosage: ASPIRIN 75 MG UNKNOWN
  10. ASPIRIN [Suspect]
     Active Substance: ASPIRIN
  11. RAMIPRIL [Suspect]
     Active Substance: RAMIPRIL
     Indication: Product used for unknown indication
     Dosage: RAMIPRIL 5 MG UNKNOWN
  12. RAMIPRIL [Suspect]
     Active Substance: RAMIPRIL

REACTIONS (6)
  - Headache [Unknown]
  - Vision blurred [Unknown]
  - Malaise [Unknown]
  - Blood pressure systolic increased [Unknown]
  - Nausea [Unknown]
  - Product dispensing error [Unknown]

NARRATIVE: CASE EVENT DATE: 20200107
